FAERS Safety Report 6675642-3 (Version None)
Quarter: 2010Q2

REPORT INFORMATION
  Report Type: 
  Country: None (occurrence: None)
  Receive Date: 20100409
  Receipt Date: 20100330
  Transmission Date: 20101027
  Serious: No
  Sender: FDA-Public Use
  Company Number: A0853508A

PATIENT
  Sex: Female

DRUGS (2)
  1. RELENZA [Suspect]
     Indication: H1N1 INFLUENZA
     Dosage: 2PUFF TWICE PER DAY
     Route: 055
     Dates: start: 20100309
  2. IPRATROPIUM [Concomitant]
     Route: 055

REACTIONS (3)
  - CONDITION AGGRAVATED [None]
  - PRODUCT QUALITY ISSUE [None]
  - TREATMENT NONCOMPLIANCE [None]
